FAERS Safety Report 14197465 (Version 2)
Quarter: 2017Q4

REPORT INFORMATION
  Report Type: Spontaneous
  Country: US (occurrence: US)
  Receive Date: 20171116
  Receipt Date: 20171128
  Transmission Date: 20180321
  Serious: Yes (Hospitalization, Other)
  Sender: FDA-Public Use
  Company Number: US-INDIVIOR LIMITED-INDV-106055-2017

PATIENT
  Sex: Male

DRUGS (8)
  1. SUBOXONE [Suspect]
     Active Substance: BUPRENORPHINE HYDROCHLORIDE\NALOXONE HYDROCHLORIDE
     Dosage: UNK
     Route: 060
     Dates: start: 2017, end: 20171121
  2. BUPRENORPHINE/NALOXONE GENERIC [Suspect]
     Active Substance: BUPRENORPHINE\NALOXONE
     Indication: DRUG DEPENDENCE
     Dosage: 2 DAILY TABLETS
     Route: 065
     Dates: start: 20171114
  3. LYRICA [Concomitant]
     Active Substance: PREGABALIN
     Indication: PRODUCT USED FOR UNKNOWN INDICATION
     Dosage: UNK
     Route: 065
     Dates: start: 2009
  4. SUBOXONE [Suspect]
     Active Substance: BUPRENORPHINE HYDROCHLORIDE\NALOXONE HYDROCHLORIDE
     Indication: DRUG DEPENDENCE
     Dosage: 8 MG, BID
     Route: 060
     Dates: start: 2017, end: 2017
  5. SUBOXONE [Suspect]
     Active Substance: BUPRENORPHINE HYDROCHLORIDE\NALOXONE HYDROCHLORIDE
     Dosage: TAKES 2.5 TO 3 FILMS PER DAY
     Route: 060
     Dates: start: 2017, end: 2017
  6. SUBOXONE [Suspect]
     Active Substance: BUPRENORPHINE HYDROCHLORIDE\NALOXONE HYDROCHLORIDE
     Indication: DRUG DEPENDENCE
     Dosage: 8MG
     Route: 065
     Dates: start: 2009
  7. SUBOXONE [Suspect]
     Active Substance: BUPRENORPHINE HYDROCHLORIDE\NALOXONE HYDROCHLORIDE
     Dosage: TAKES 2 FILMS PER DAY
     Route: 060
     Dates: start: 2017, end: 2017
  8. SUBOXONE [Suspect]
     Active Substance: BUPRENORPHINE HYDROCHLORIDE\NALOXONE HYDROCHLORIDE
     Dosage: CUT DOWN TO 1 FILM PER DAY
     Route: 060
     Dates: start: 2017, end: 2017

REACTIONS (18)
  - Depression [Unknown]
  - Back injury [Unknown]
  - Product use issue [Recovered/Resolved]
  - Gait disturbance [Unknown]
  - Headache [Unknown]
  - Wrong technique in product usage process [Recovered/Resolved]
  - Hip fracture [Unknown]
  - Sepsis [Unknown]
  - Therapeutic response decreased [Unknown]
  - Drug screen negative [Unknown]
  - Fall [Recovered/Resolved]
  - Malaise [Unknown]
  - Therapeutic response unexpected [Unknown]
  - Somnolence [Unknown]
  - Intentional product use issue [Recovered/Resolved]
  - Pain [Unknown]
  - Staphylococcal infection [Unknown]
  - Intentional underdose [Recovered/Resolved]

NARRATIVE: CASE EVENT DATE: 2012
